FAERS Safety Report 14336691 (Version 2)
Quarter: 2018Q1

REPORT INFORMATION
  Report Type: Spontaneous
  Country: US (occurrence: US)
  Receive Date: 20171229
  Receipt Date: 20180104
  Transmission Date: 20180509
  Serious: Yes (Death, Hospitalization)
  Sender: FDA-Public Use
  Company Number: US-BAYER-2017-247220

PATIENT
  Age: 53 Year
  Sex: Male

DRUGS (7)
  1. HEPARIN [Interacting]
     Active Substance: HEPARIN SODIUM
     Dosage: UNK
  2. ACETYLSALICYLIC ACID({=100 MG) [Suspect]
     Active Substance: ASPIRIN
     Indication: ANTIPLATELET THERAPY
     Dosage: 81 MG, QD
  3. EPTIFIBATIDE. [Interacting]
     Active Substance: EPTIFIBATIDE
     Indication: ANTIPLATELET THERAPY
     Dosage: 1 MG/KG/MIN TO MAINTAIN
  4. HEPARIN [Interacting]
     Active Substance: HEPARIN SODIUM
  5. CLOPIDOGREL [Interacting]
     Active Substance: CLOPIDOGREL BISULFATE
  6. TICAGRELOR. [Interacting]
     Active Substance: TICAGRELOR
     Dosage: 90 MG, BID
  7. CANGRELOR [Interacting]
     Active Substance: CANGRELOR
     Dosage: 2 MG/KG/MIN TO  0.5 MG/KG/MIN
     Route: 042

REACTIONS (4)
  - Pulmonary haemorrhage [None]
  - Drug administration error [None]
  - Neurological decompensation [Fatal]
  - Labelled drug-drug interaction medication error [None]
